FAERS Safety Report 12252201 (Version 1)
Quarter: 2016Q2

REPORT INFORMATION
  Report Type: Spontaneous
  Country: US (occurrence: None)
  Receive Date: 20160408
  Receipt Date: 20160408
  Transmission Date: 20160815
  Serious: Yes (Other)
  Sender: FDA-Public Use
  Company Number: None

PATIENT
  Age: 59 Year
  Sex: Female
  Weight: 54.43 kg

DRUGS (5)
  1. CALCIUM CITRATE [Concomitant]
     Active Substance: CALCIUM CITRATE
  2. BIOTIN [Concomitant]
     Active Substance: BIOTIN
  3. TRAMADOL, 50 MG AMNEAL [Suspect]
     Active Substance: TRAMADOL HYDROCHLORIDE
     Indication: MUSCULOSKELETAL PAIN
     Dosage: 60 TABLET(S) EVERY 6 HOURS TAKEN BY MOUTH
     Route: 048
     Dates: start: 20160330, end: 20160331
  4. VIT. B-COMPLEX [Concomitant]
  5. TRAMADOL, 50 MG AMNEAL [Suspect]
     Active Substance: TRAMADOL HYDROCHLORIDE
     Indication: NECK PAIN
     Dosage: 60 TABLET(S) EVERY 6 HOURS TAKEN BY MOUTH
     Route: 048
     Dates: start: 20160330, end: 20160331

REACTIONS (7)
  - Retching [None]
  - Nausea [None]
  - Headache [None]
  - Incorrect dose administered [None]
  - Dizziness [None]
  - Feeding disorder [None]
  - Bedridden [None]

NARRATIVE: CASE EVENT DATE: 20160331
